FAERS Safety Report 4908374-X (Version None)
Quarter: 2006Q1

REPORT INFORMATION
  Report Type: 
  Country: None (occurrence: None)
  Receive Date: 20060210
  Receipt Date: 20060203
  Transmission Date: 20060701
  Serious: Yes (Hospitalization)
  Sender: FDA-Public Use
  Company Number: 2006AP00600

PATIENT
  Age: 62 Year
  Sex: Female

DRUGS (2)
  1. ARIMIDEX [Suspect]
     Indication: BREAST CANCER
     Route: 048
     Dates: start: 20050614, end: 20060112
  2. ARIMIDEX [Suspect]
     Route: 048
     Dates: start: 20050624

REACTIONS (3)
  - GENITAL HAEMORRHAGE [None]
  - HEPATITIS ACUTE [None]
  - HEPATITIS VIRAL [None]
